FAERS Safety Report 22066234 (Version 1)
Quarter: 2023Q1

REPORT INFORMATION
  Report Type: Spontaneous
  Country: US (occurrence: None)
  Receive Date: 20230306
  Receipt Date: 20230306
  Transmission Date: 20230417
  Serious: Yes (Other)
  Sender: FDA-Public Use
  Company Number: None

PATIENT
  Age: 41 Year
  Sex: Female
  Weight: 60.75 kg

DRUGS (4)
  1. DEXTROAMPHET SACCHARAT, AMPHET ASPARTATE, DEXTROAMPHET SULFATE AND AMP [Suspect]
     Active Substance: AMPHETAMINE ASPARTATE\AMPHETAMINE SULFATE\DEXTROAMPHETAMINE SACCHARATE\DEXTROAMPHETAMINE SULFATE
     Indication: Attention deficit hyperactivity disorder
     Dosage: OTHER QUANTITY : 1 CAPSULE(S);?
     Route: 048
     Dates: start: 20230304, end: 20230306
  2. Amphetamine- Dextroamphetamin 5mg tab [Concomitant]
  3. Daily multi vitamin [Concomitant]
  4. 400 mg magnesium [Concomitant]

REACTIONS (5)
  - Psychomotor hyperactivity [None]
  - Irritability [None]
  - Impulsive behaviour [None]
  - Tic [None]
  - Ear discomfort [None]

NARRATIVE: CASE EVENT DATE: 20230305
